FAERS Safety Report 18267388 (Version 1)
Quarter: 2020Q3

REPORT INFORMATION
  Report Type: Spontaneous
  Country: CA (occurrence: CA)
  Receive Date: 20200915
  Receipt Date: 20200915
  Transmission Date: 20201103
  Serious: Yes (Life-Threatening, Hospitalization, Other)
  Sender: FDA-Public Use
  Company Number: CA-ALVOGEN-2020-ALVOGEN-114011

PATIENT
  Age: 22 Year
  Sex: Female

DRUGS (2)
  1. METAMFETAMINE HYDROCHLORIDE [Suspect]
     Active Substance: METHAMPHETAMINE HYDROCHLORIDE
     Indication: PRODUCT USED FOR UNKNOWN INDICATION
     Route: 042
  2. FENTANYL. [Suspect]
     Active Substance: FENTANYL
     Indication: TACHYPNOEA
     Route: 048

REACTIONS (10)
  - Hyperlactacidaemia [Recovered/Resolved]
  - Toxicity to various agents [Recovered/Resolved]
  - Myocardial depression [Unknown]
  - Cardiogenic shock [Recovered/Resolved]
  - Metabolic acidosis [Recovered/Resolved]
  - Hypothermia [Recovered/Resolved]
  - Cardiomyopathy [Recovered/Resolved]
  - Cardiac arrest [Recovered/Resolved]
  - Pulmonary oedema [Recovered/Resolved]
  - Multiple organ dysfunction syndrome [Recovered/Resolved]
